FAERS Safety Report 15225947 (Version 1)
Quarter: 2018Q3

REPORT INFORMATION
  Report Type: Spontaneous
  Country: US (occurrence: US)
  Receive Date: 20180801
  Receipt Date: 20180801
  Transmission Date: 20181010
  Serious: Yes (Life-Threatening, Hospitalization, Other)
  Sender: FDA-Public Use
  Company Number: US-LUPIN PHARMACEUTICALS INC.-2018-05372

PATIENT
  Age: 64 Year
  Sex: Female

DRUGS (3)
  1. AZTREONAM. [Concomitant]
     Active Substance: AZTREONAM
     Indication: RESPIRATORY TRACT INFECTION
     Dosage: UNK
     Route: 065
  2. VANCOMYCIN [Suspect]
     Active Substance: VANCOMYCIN
     Indication: RESPIRATORY TRACT INFECTION
     Dosage: UNK
     Route: 065
  3. AZITHROMYCIN ANHYDROUS. [Concomitant]
     Active Substance: AZITHROMYCIN ANHYDROUS
     Indication: RESPIRATORY TRACT INFECTION
     Dosage: UNK
     Route: 065

REACTIONS (6)
  - Pneumothorax spontaneous [Recovering/Resolving]
  - Drug resistance [Recovering/Resolving]
  - Respiratory failure [Recovering/Resolving]
  - Pneumothorax [Recovering/Resolving]
  - Empyema [Recovering/Resolving]
  - Enterococcal infection [Recovering/Resolving]
